FAERS Safety Report 15978725 (Version 2)
Quarter: 2019Q1

REPORT INFORMATION
  Report Type: Spontaneous
  Country: IE (occurrence: IE)
  Receive Date: 20190219
  Receipt Date: 20190304
  Transmission Date: 20190418
  Serious: Yes (Other)
  Sender: FDA-Public Use
  Company Number: IE-TEVA-2019-IE-1013829

PATIENT
  Age: 36 Year
  Sex: Female

DRUGS (4)
  1. CO-AMOXICLAV FANNIN [Suspect]
     Active Substance: AMOXICILLIN\CLAVULANATE POTASSIUM
     Indication: ANTIBIOTIC PROPHYLAXIS
     Dosage: STAT DOSE
     Route: 042
     Dates: start: 20190128, end: 20190128
  2. PARACETAMOL 10MG/ML SOLUTION FOR INFUSION [Suspect]
     Active Substance: ACETAMINOPHEN
     Indication: ANALGESIC THERAPY
     Dosage: STAT DOSE
     Route: 042
     Dates: start: 20190128, end: 20190128
  3. PARACETAMOL 10MG/ML SOLUTION FOR INFUSION [Suspect]
     Active Substance: ACETAMINOPHEN
     Route: 065
  4. CO-AMOXICLAV FANNIN [Suspect]
     Active Substance: AMOXICILLIN\CLAVULANATE POTASSIUM
     Route: 065

REACTIONS (3)
  - Dyspnoea [Recovered/Resolved]
  - Throat tightness [Recovered/Resolved]
  - Body temperature increased [Recovered/Resolved]

NARRATIVE: CASE EVENT DATE: 20190128
